FAERS Safety Report 9258470 (Version 1)
Quarter: 2013Q2

REPORT INFORMATION
  Report Type: Spontaneous
  Country: US (occurrence: US)
  Receive Date: 20130426
  Receipt Date: 20130426
  Transmission Date: 20140414
  Serious: No
  Sender: FDA-Public Use
  Company Number: US-PFIZER INC-2013130403

PATIENT
  Age: 53 Year
  Sex: Male
  Weight: 78.01 kg

DRUGS (4)
  1. LYRICA [Suspect]
     Indication: NEURALGIA
     Dosage: 75 MG, 2X/DAY
     Dates: start: 200804
  2. LYRICA [Suspect]
     Dosage: 150 MG, 3X/DAY
  3. METHOTREXATE SODIUM [Suspect]
     Indication: ARTHRITIS
     Dosage: UNK
     Dates: start: 201210, end: 201212
  4. ALLOPURINOL [Concomitant]
     Indication: GOUT
     Dosage: 300 MG, 1X/DAY

REACTIONS (1)
  - Drug ineffective [Unknown]
